FAERS Safety Report 22076202 (Version 1)
Quarter: 2023Q1

REPORT INFORMATION
  Report Type: Other
  Country: US (occurrence: US)
  Receive Date: 20230309
  Receipt Date: 20230309
  Transmission Date: 20230418
  Serious: Yes (Hospitalization)
  Sender: FDA-Public Use
  Company Number: US-GBT-020626

PATIENT
  Age: 37 Year
  Sex: Female

DRUGS (2)
  1. OXBRYTA [Suspect]
     Active Substance: VOXELOTOR
     Indication: Sickle cell disease
     Route: 065
  2. ENDARI [Concomitant]
     Active Substance: GLUTAMINE
     Indication: Sickle cell disease

REACTIONS (6)
  - Sickle cell anaemia with crisis [Unknown]
  - Nausea [Unknown]
  - Fatigue [Unknown]
  - Epistaxis [Unknown]
  - Headache [Unknown]
  - Therapy cessation [Unknown]
